FAERS Safety Report 7612137-4 (Version None)
Quarter: 2011Q3

REPORT INFORMATION
  Report Type: 
  Country: None (occurrence: None)
  Receive Date: 20110715
  Receipt Date: 20110704
  Transmission Date: 20111222
  Serious: Yes (Hospitalization)
  Sender: FDA-Public Use
  Company Number: AU-AMGEN-AUSSP2011031441

PATIENT
  Age: 65 Year
  Sex: Female

DRUGS (5)
  1. CORTISONE ACETATE [Concomitant]
  2. IMURAN [Concomitant]
  3. PREDNISOLONE [Concomitant]
  4. GOLD [Concomitant]
  5. PROLIA [Suspect]
     Indication: OSTEOPOROSIS POSTMENOPAUSAL
     Dosage: UNK
     Dates: start: 20110101

REACTIONS (3)
  - LOCALISED INFECTION [None]
  - RHEUMATOID ARTHRITIS [None]
  - PARKINSON'S DISEASE [None]
